FAERS Safety Report 6674627-0 (Version None)
Quarter: 2010Q2

REPORT INFORMATION
  Report Type: 
  Country: None (occurrence: None)
  Receive Date: 20100409
  Receipt Date: 20100406
  Transmission Date: 20101027
  Serious: Yes (Death)
  Sender: FDA-Public Use
  Company Number: EG-ROCHE-695739

PATIENT
  Age: 72 Year
  Sex: Female

DRUGS (1)
  1. ROCEPHIN [Suspect]
     Indication: UPPER RESPIRATORY TRACT INFECTION
     Route: 042
     Dates: start: 20100322, end: 20100402

REACTIONS (1)
  - LUPUS NEPHRITIS [None]
